FAERS Safety Report 4486796-1 (Version None)
Quarter: 2004Q4

REPORT INFORMATION
  Report Type: 
  Country: None (occurrence: None)
  Receive Date: 20041027
  Receipt Date: 20041019
  Transmission Date: 20050328
  Serious: Yes (Life-Threatening, Hospitalization)
  Sender: FDA-Public Use
  Company Number: DE-MERCK-0410DEU00565

PATIENT
  Age: 48 Year
  Sex: Male

DRUGS (2)
  1. VIOXX [Suspect]
     Route: 048
     Dates: start: 20001001, end: 20020101
  2. VIOXX [Suspect]
     Route: 048
     Dates: start: 20020101

REACTIONS (5)
  - DEEP VEIN THROMBOSIS [None]
  - DEPRESSION [None]
  - LOCALISED OSTEOARTHRITIS [None]
  - PULMONARY EMBOLISM [None]
  - SYNOVITIS [None]
